FAERS Safety Report 5303350-X (Version None)
Quarter: 2007Q2

REPORT INFORMATION
  Report Type: 
  Country: None (occurrence: None)
  Receive Date: 20070420
  Receipt Date: 20070418
  Transmission Date: 20071010
  Serious: Yes (Other)
  Sender: FDA-Public Use
  Company Number: US-BRISTOL-MYERS SQUIBB COMPANY-13743208

PATIENT
  Age: 39 Year
  Sex: Male

DRUGS (1)
  1. ENTECAVIR [Suspect]
     Dosage: INITIATED AT 0.5 MG DAILY AND INCREASED TO 1.0 MG DAILY 4 WEEKS LATER
     Route: 048
     Dates: start: 20061101

REACTIONS (2)
  - BLOOD HIV RNA DECREASED [None]
  - DRUG RESISTANCE [None]
